FAERS Safety Report 12975827 (Version 5)
Quarter: 2017Q2

REPORT INFORMATION
  Report Type: Report from Study
  Country: AU (occurrence: AU)
  Receive Date: 20161125
  Receipt Date: 20170414
  Transmission Date: 20170830
  Serious: Yes (Death, Hospitalization, Other)
  Sender: FDA-Public Use
  Company Number: AU-009507513-1611AUS007642

PATIENT
  Age: 77 Year
  Sex: Female
  Weight: 77 kg

DRUGS (3)
  1. PEMBROLIZUMAB. [Suspect]
     Active Substance: PEMBROLIZUMAB
     Indication: MESOTHELIOMA MALIGNANT
     Dosage: 165 MG, Q3W
     Route: 042
     Dates: start: 20160914, end: 20161021
  2. ACETAMINOPHEN. [Concomitant]
     Active Substance: ACETAMINOPHEN
  3. TRITACE [Concomitant]
     Active Substance: RAMIPRIL

REACTIONS (12)
  - Pneumonia [Fatal]
  - Thyroiditis [Unknown]
  - Hiatus hernia [Unknown]
  - Hepatitis [Unknown]
  - Post procedural complication [Fatal]
  - Upper gastrointestinal haemorrhage [Fatal]
  - Off label use [Unknown]
  - Dysphagia [Unknown]
  - Oesophageal rupture [Unknown]
  - Respiratory failure [Fatal]
  - Aspiration [Unknown]
  - Myasthenia gravis [Fatal]

NARRATIVE: CASE EVENT DATE: 2016
